FAERS Safety Report 7017550-4 (Version None)
Quarter: 2010Q3

REPORT INFORMATION
  Report Type: 
  Country: None (occurrence: None)
  Receive Date: 20100928
  Receipt Date: 20090824
  Transmission Date: 20110219
  Serious: No
  Sender: FDA-Public Use
  Company Number: US-MYLANLABS-2009S1015107

PATIENT
  Age: 63 Year
  Sex: Male

DRUGS (2)
  1. SPIRONOLACTONE [Suspect]
     Indication: BLOOD PRESSURE INCREASED
     Route: 048
     Dates: start: 20090101
  2. HYDROCHLOROTHIAZIDE [Suspect]
     Indication: BLOOD PRESSURE INCREASED
     Route: 048
     Dates: start: 20070101, end: 20090101

REACTIONS (5)
  - ALOPECIA [None]
  - FATIGUE [None]
  - PRURITUS [None]
  - RASH [None]
  - SOMNOLENCE [None]
